FAERS Safety Report 19779079 (Version 1)
Quarter: 2021Q3

REPORT INFORMATION
  Report Type: Spontaneous
  Country: US (occurrence: US)
  Receive Date: 20210830
  Receipt Date: 20210830
  Transmission Date: 20211014
  Serious: No
  Sender: FDA-Public Use
  Company Number: None

PATIENT
  Age: 15 Year
  Sex: Female

DRUGS (1)
  1. NORDITROPIN [Suspect]
     Active Substance: SOMATROPIN
     Indication: PITUITARY GONADOTROPIN HYPERFUNCTION
     Route: 058
     Dates: start: 202104

REACTIONS (4)
  - Incorrect dose administered [None]
  - Device malfunction [None]
  - Liquid product physical issue [None]
  - Fatigue [None]

NARRATIVE: CASE EVENT DATE: 20210528
